FAERS Safety Report 25742489 (Version 2)
Quarter: 2025Q3

REPORT INFORMATION
  Report Type: Spontaneous
  Country: US (occurrence: US)
  Receive Date: 20250829
  Receipt Date: 20250929
  Transmission Date: 20251020
  Serious: No
  Sender: PFIZER
  Company Number: US-PFIZER INC-202500169035

PATIENT
  Age: 14 Year
  Sex: Male
  Weight: 54.43 kg

DRUGS (4)
  1. GENOTROPIN [Suspect]
     Active Substance: SOMATROPIN
     Indication: Small for dates baby
     Dosage: UNK UNK, DAILY
     Dates: start: 202012
  2. GENOTROPIN [Suspect]
     Active Substance: SOMATROPIN
     Dosage: 1.2 MG, DAILY
     Dates: start: 20250821
  3. ANASTROZOLE [Suspect]
     Active Substance: ANASTROZOLE
     Indication: Small for dates baby
     Dates: start: 20240701
  4. TRIAMCINOLONE ACETONIDE [Concomitant]
     Active Substance: TRIAMCINOLONE ACETONIDE
     Indication: Eczema

REACTIONS (1)
  - Acne [Unknown]
